FAERS Safety Report 6048428-0 (Version None)
Quarter: 2009Q1

REPORT INFORMATION
  Report Type: 
  Country: None (occurrence: None)
  Receive Date: 20090123
  Receipt Date: 20090116
  Transmission Date: 20090719
  Serious: Yes (Hospitalization)
  Sender: FDA-Public Use
  Company Number: A0764589A

PATIENT
  Age: 42 Year
  Sex: Female
  Weight: 75 kg

DRUGS (6)
  1. AVANDIA [Suspect]
     Dosage: 8MG PER DAY
     Route: 048
     Dates: start: 19990101, end: 20070601
  2. GLUCOPHAGE [Concomitant]
  3. INSULIN [Concomitant]
  4. GLUCOTROL [Concomitant]
  5. ALEVE [Concomitant]
  6. TYLENOL (CAPLET) [Concomitant]

REACTIONS (7)
  - CARDIAC DISORDER [None]
  - CARDIAC FAILURE CONGESTIVE [None]
  - CHEST PAIN [None]
  - DIZZINESS [None]
  - HEART VALVE INCOMPETENCE [None]
  - LIVER INJURY [None]
  - PANCREATITIS [None]
